FAERS Safety Report 10024031 (Version 2)
Quarter: 2014Q2

REPORT INFORMATION
  Report Type: Spontaneous
  Country: FR (occurrence: FR)
  Receive Date: 20140320
  Receipt Date: 20140404
  Transmission Date: 20141212
  Serious: Yes (Hospitalization, Other)
  Sender: FDA-Public Use
  Company Number: PHHY2014FR031842

PATIENT
  Sex: Male

DRUGS (3)
  1. AFINITOR [Suspect]
     Indication: SMALL INTESTINE CARCINOMA METASTATIC
     Dosage: 10 MG, UNK
     Route: 048
     Dates: start: 20131001, end: 20140222
  2. AFINITOR [Suspect]
     Indication: OFF LABEL USE
  3. FLUCONAZOLE [Interacting]
     Indication: MUCOSAL INFLAMMATION
     Route: 048
     Dates: start: 20140214, end: 20140220

REACTIONS (9)
  - General physical health deterioration [Unknown]
  - Hepatocellular injury [Recovered/Resolved]
  - Liver function test abnormal [Unknown]
  - Diarrhoea [Recovered/Resolved]
  - Dehydration [Recovered/Resolved]
  - Renal failure [Recovered/Resolved]
  - Thrombocytopenia [Recovered/Resolved]
  - Hyperglycaemia [Recovered/Resolved]
  - Drug interaction [Unknown]
